FAERS Safety Report 7013754-5 (Version None)
Quarter: 2010Q3

REPORT INFORMATION
  Report Type: 
  Country: None (occurrence: None)
  Receive Date: 20100924
  Receipt Date: 20100915
  Transmission Date: 20110219
  Serious: Yes (Other)
  Sender: FDA-Public Use
  Company Number: JP-ELI_LILLY_AND_COMPANY-JP200712004672

PATIENT
  Sex: Male

DRUGS (4)
  1. GEMZAR [Suspect]
     Indication: NON-SMALL CELL LUNG CANCER
     Dosage: 1400 MG, OTHER
     Route: 042
     Dates: start: 20061102
  2. GEMZAR [Suspect]
     Dosage: 1000 MG, OTHER
     Route: 042
     Dates: end: 20070118
  3. CARBOPLATIN [Concomitant]
     Indication: NON-SMALL CELL LUNG CANCER
     Dosage: 350 MG, OTHER
     Route: 042
     Dates: start: 20061102
  4. CARBOPLATIN [Concomitant]
     Dosage: 300 MG, OTHER
     Route: 042
     Dates: end: 20070118

REACTIONS (1)
  - INTERSTITIAL LUNG DISEASE [None]
